FAERS Safety Report 6457056-4 (Version None)
Quarter: 2009Q4

REPORT INFORMATION
  Report Type: 
  Country: None (occurrence: None)
  Receive Date: 20091125
  Receipt Date: 20091120
  Transmission Date: 20100525
  Serious: Yes (Hospitalization)
  Sender: FDA-Public Use
  Company Number: A0822129A

PATIENT
  Sex: Female
  Weight: 77 kg

DRUGS (7)
  1. ARIXTRA [Suspect]
     Indication: PULMONARY EMBOLISM
     Dosage: 7.5MG PER DAY
     Route: 058
     Dates: start: 20090906
  2. TYLENOL (CAPLET) [Concomitant]
  3. PRILOSEC [Concomitant]
  4. ZOFRAN [Concomitant]
  5. LORAZEPAM [Concomitant]
  6. LOVENOX [Concomitant]
  7. COUMADIN [Concomitant]

REACTIONS (4)
  - MUSCLE SPASMS [None]
  - MUSCULOSKELETAL PAIN [None]
  - MYALGIA [None]
  - WEIGHT DECREASED [None]
